FAERS Safety Report 5235420-9 (Version None)
Quarter: 2007Q1

REPORT INFORMATION
  Report Type: 
  Country: None (occurrence: None)
  Receive Date: 20070212
  Receipt Date: 20070207
  Transmission Date: 20070707
  Serious: Yes (Hospitalization)
  Sender: FDA-Public Use
  Company Number: US-BRISTOL-MYERS SQUIBB COMPANY-13672357

PATIENT
  Age: 64 Year
  Sex: Female
  Weight: 77 kg

DRUGS (8)
  1. CISPLATIN [Suspect]
     Indication: SQUAMOUS CELL CARCINOMA
     Dates: start: 20070131, end: 20070131
  2. RADIATION THERAPY [Suspect]
     Indication: SQUAMOUS CELL CARCINOMA
     Dates: start: 20070131, end: 20070131
  3. COMPAZINE [Concomitant]
  4. DECADRON [Concomitant]
  5. HYDROCODONE [Concomitant]
  6. PAXIL [Concomitant]
  7. SENNA-S [Concomitant]
  8. ZOFRAN [Concomitant]

REACTIONS (6)
  - ANOREXIA [None]
  - DEHYDRATION [None]
  - DYSPHAGIA [None]
  - NAUSEA [None]
  - SALIVARY GLAND DISORDER [None]
  - VOMITING [None]
